FAERS Safety Report 10274833 (Version 2)
Quarter: 2014Q3

REPORT INFORMATION
  Report Type: Spontaneous
  Country: US (occurrence: US)
  Receive Date: 20140702
  Receipt Date: 20140830
  Transmission Date: 20150326
  Serious: No
  Sender: FDA-Public Use
  Company Number: US-009507513-1406USA006700

PATIENT
  Age: 24 Year
  Sex: Female

DRUGS (1)
  1. NEXPLANON [Suspect]
     Active Substance: ETONOGESTREL
     Indication: CONTRACEPTION
     Dosage: 68 MG, UNK
     Dates: start: 20140530, end: 20140609

REACTIONS (8)
  - Implant site erythema [Unknown]
  - Device expulsion [Recovered/Resolved]
  - Implant site discharge [Unknown]
  - Device deployment issue [Recovered/Resolved]
  - Medical device complication [Recovered/Resolved]
  - Infection [Unknown]
  - Implant site pain [Unknown]
  - Impaired healing [Unknown]

NARRATIVE: CASE EVENT DATE: 2014
